FAERS Safety Report 4655590-0 (Version None)
Quarter: 2005Q2

REPORT INFORMATION
  Report Type: 
  Country: None (occurrence: None)
  Receive Date: 20050505
  Receipt Date: 20050414
  Transmission Date: 20051028
  Serious: Yes (Hospitalization, Other)
  Sender: FDA-Public Use
  Company Number: US_0504115473

PATIENT
  Age: 80 Year
  Sex: Female

DRUGS (15)
  1. ZYPREXA [Suspect]
     Dosage: 10 MG
  2. ZYRTEC [Concomitant]
  3. LEVOFLOXACIN [Concomitant]
  4. GALENIC /SALBUTAMOL SULFATE/IPRATROPIUM BROM/ [Concomitant]
  5. FEXOFENADINE HYDROCHLORIDE [Concomitant]
  6. APO-PREDNISONE (PREDNISONE) [Concomitant]
  7. MYCELEX [Concomitant]
  8. LEVOTHYROXINE SODIUM [Concomitant]
  9. PAXIL [Concomitant]
  10. NITROGLYCERIN [Concomitant]
  11. PREVACID [Concomitant]
  12. PRAVACHOL [Concomitant]
  13. LISINOPRIL [Concomitant]
  14. PLAVIX [Concomitant]
  15. ATENOLOL [Concomitant]

REACTIONS (3)
  - LOSS OF CONSCIOUSNESS [None]
  - MEDICATION ERROR [None]
  - SOMNOLENCE [None]
